FAERS Safety Report 5882033-1 (Version None)
Quarter: 2008Q3

REPORT INFORMATION
  Report Type: 
  Country: None (occurrence: None)
  Receive Date: 20080912
  Receipt Date: 20080717
  Transmission Date: 20090109
  Serious: Yes (Other)
  Sender: FDA-Public Use
  Company Number: US-ABBOTT-08P-163-0464852-00

PATIENT
  Weight: 93.978 kg

DRUGS (12)
  1. HUMIRA [Suspect]
     Indication: CROHN'S DISEASE
     Route: 050
     Dates: start: 20080709, end: 20080709
  2. HUMIRA [Suspect]
     Dates: start: 20080716, end: 20080716
  3. OMEPRAZOLE MAGNESIUM [Concomitant]
     Indication: GASTRIC DISORDER
     Route: 048
  4. AZATHIOPRINE [Concomitant]
     Indication: CROHN'S DISEASE
     Route: 048
  5. PHENERGAN HCL [Concomitant]
     Indication: NAUSEA
     Route: 048
  6. ONDANSETRON [Concomitant]
     Indication: NAUSEA
     Route: 048
  7. CLONAZEPAM [Concomitant]
     Indication: ANXIETY
     Route: 048
  8. VENLAFAXINE HCL [Concomitant]
     Indication: DEPRESSION
     Route: 048
  9. BUDESONIDE [Concomitant]
     Indication: INFLAMMATION
     Route: 048
  10. PROCHLORPERAZINE EDISYLATE [Concomitant]
     Indication: NAUSEA
     Route: 048
  11. ESTRADIOL [Concomitant]
     Indication: CONTRACEPTION
     Route: 048
  12. LOMOTIL [Concomitant]
     Indication: DIARRHOEA
     Route: 048

REACTIONS (2)
  - ANAPHYLACTIC REACTION [None]
  - UPPER RESPIRATORY TRACT INFECTION [None]
